FAERS Safety Report 16855615 (Version 1)
Quarter: 2019Q3

REPORT INFORMATION
  Report Type: Report from Study
  Country: ES (occurrence: ES)
  Receive Date: 20190926
  Receipt Date: 20190926
  Transmission Date: 20191005
  Serious: Yes (Other)
  Sender: FDA-Public Use
  Company Number: ES-MYLANLABS-2019M1088714

PATIENT
  Sex: Male

DRUGS (3)
  1. TAMSULOSIN [Suspect]
     Active Substance: TAMSULOSIN
     Indication: BENIGN PROSTATIC HYPERPLASIA
     Dosage: .4 MG, UNK
     Route: 048
     Dates: start: 20170603, end: 20170915
  2. CARDYL [Concomitant]
     Active Substance: ATORVASTATIN CALCIUM
     Indication: PRODUCT USED FOR UNKNOWN INDICATION
     Dosage: UNK
     Dates: start: 20170526
  3. MICARDIS [Concomitant]
     Active Substance: TELMISARTAN
     Indication: PRODUCT USED FOR UNKNOWN INDICATION
     Dosage: UNK
     Dates: start: 20170526

REACTIONS (9)
  - Urine flow decreased [Unknown]
  - Pollakiuria [Recovered/Resolved]
  - Prostatism [Unknown]
  - Somnolence [Unknown]
  - Post micturition dribble [Recovered/Resolved]
  - Drug ineffective [Unknown]
  - Nocturia [Unknown]
  - Libido decreased [Recovering/Resolving]
  - Ejaculation failure [Unknown]
